FAERS Safety Report 7704013-3 (Version None)
Quarter: 2011Q3

REPORT INFORMATION
  Report Type: 
  Country: None (occurrence: None)
  Receive Date: 20110823
  Receipt Date: 20110817
  Transmission Date: 20111222
  Serious: Yes (Death)
  Sender: FDA-Public Use
  Company Number: JP-BAXTER-2011BH023010

PATIENT
  Age: 54 Year
  Sex: Male
  Weight: 76 kg

DRUGS (1)
  1. ADVATE [Suspect]
     Indication: FACTOR VIII DEFICIENCY
     Route: 042
     Dates: end: 20110711

REACTIONS (1)
  - MULTI-ORGAN FAILURE [None]
